FAERS Safety Report 17484860 (Version 2)
Quarter: 2020Q1

REPORT INFORMATION
  Report Type: Spontaneous
  Country: DE (occurrence: DE)
  Receive Date: 20200302
  Receipt Date: 20200312
  Transmission Date: 20200409
  Serious: Yes (Other)
  Sender: FDA-Public Use
  Company Number: NVSC2020DE056843

PATIENT
  Sex: Male

DRUGS (2)
  1. COSENTYX [Suspect]
     Active Substance: SECUKINUMAB
     Dosage: 150 MG (2 DF EVERY 6 WEEKS)
     Route: 065
  2. COSENTYX [Suspect]
     Active Substance: SECUKINUMAB
     Indication: PSORIASIS
     Dosage: 300 MG, Q4W (STARTED 3 YEARS AGO)
     Route: 065

REACTIONS (7)
  - Vomiting [Unknown]
  - Respiratory tract infection [Unknown]
  - Psoriasis [Unknown]
  - Influenza [Unknown]
  - Herpes virus infection [Unknown]
  - Inappropriate schedule of product administration [Unknown]
  - Cough [Unknown]
